FAERS Safety Report 4579009-3 (Version None)
Quarter: 2005Q1

REPORT INFORMATION
  Report Type: 
  Country: None (occurrence: None)
  Receive Date: 20050211
  Receipt Date: 20041028
  Transmission Date: 20050727
  Serious: Yes (Other)
  Sender: FDA-Public Use
  Company Number: US-MERCK-0410USA04373

PATIENT
  Age: 57 Year
  Sex: Female
  Weight: 70 kg

DRUGS (12)
  1. VIOXX [Suspect]
     Indication: PAIN
     Route: 048
     Dates: start: 20030401, end: 20040101
  2. VIOXX [Suspect]
     Indication: INTERVERTEBRAL DISC DEGENERATION
     Route: 048
     Dates: start: 20030401, end: 20040101
  3. LISINOPRIL [Concomitant]
     Route: 065
  4. PREMARIN [Concomitant]
     Route: 065
  5. [THERAPY UNSPECIFIED] [Concomitant]
     Route: 065
  6. XANAX [Concomitant]
     Route: 048
  7. HYDROCHLOROTHIAZIDE AND LISINOPRIL [Concomitant]
     Route: 048
  8. ASPIRIN [Concomitant]
     Route: 048
  9. WELLBUTRIN SR [Concomitant]
     Route: 048
  10. DYNACIRC CR [Concomitant]
     Route: 048
     Dates: start: 20041008
  11. NORVASC [Concomitant]
     Route: 065
  12. TOPROL-XL [Concomitant]
     Route: 065

REACTIONS (15)
  - ADVERSE EVENT [None]
  - ARTHRALGIA [None]
  - BLOOD PRESSURE INCREASED [None]
  - CEREBROVASCULAR ACCIDENT [None]
  - FORMICATION [None]
  - HEADACHE [None]
  - HYPERHIDROSIS [None]
  - HYPERTENSION [None]
  - HYPOAESTHESIA [None]
  - JOINT RANGE OF MOTION DECREASED [None]
  - MOVEMENT DISORDER [None]
  - PAIN [None]
  - PAIN IN EXTREMITY [None]
  - REFUSAL OF TREATMENT BY PATIENT [None]
  - ROAD TRAFFIC ACCIDENT [None]
